FAERS Safety Report 4976631-7 (Version None)
Quarter: 2006Q2

REPORT INFORMATION
  Report Type: 
  Country: None (occurrence: None)
  Receive Date: 20060419
  Receipt Date: 20060215
  Transmission Date: 20061013
  Serious: Yes (Hospitalization)
  Sender: FDA-Public Use
  Company Number: US-MERCK-0602USA04479

PATIENT
  Age: 61 Year
  Sex: Male
  Weight: 102 kg

DRUGS (6)
  1. VIOXX [Suspect]
     Indication: ARTHRITIS
     Route: 048
     Dates: start: 19991007, end: 20020614
  2. VIOXX [Suspect]
     Route: 048
     Dates: start: 20020601
  3. HYTRIN [Concomitant]
     Route: 048
  4. GLUCOPHAGE [Concomitant]
     Route: 048
  5. VIAGRA [Concomitant]
     Route: 048
  6. LANOXIN [Concomitant]
     Route: 048

REACTIONS (11)
  - ANGINA UNSTABLE [None]
  - ARRHYTHMIA [None]
  - ATRIAL TACHYCARDIA [None]
  - CHEST PAIN [None]
  - CHRONIC OBSTRUCTIVE PULMONARY DISEASE [None]
  - CORONARY ARTERY DISEASE [None]
  - DIABETES MELLITUS [None]
  - HEART RATE IRREGULAR [None]
  - MYOCARDIAL INFARCTION [None]
  - SINUS TACHYCARDIA [None]
  - URINARY TRACT INFECTION [None]
